FAERS Safety Report 9153193 (Version 1)
Quarter: 2013Q1

REPORT INFORMATION
  Report Type: Spontaneous
  Country: US (occurrence: None)
  Receive Date: 20130304
  Receipt Date: 20130304
  Transmission Date: 20140127
  Serious: No
  Sender: FDA-Public Use
  Company Number: None

PATIENT
  Age: 74 Year
  Sex: Male

DRUGS (1)
  1. ERIVEDGE 150MG GENENTECH [Suspect]
     Indication: BASAL CELL CARCINOMA
     Dosage: 1 CAPSULE (150 MG) DAIY WITH OR WITHOUT FOOD ORAL
     Route: 048
     Dates: start: 20120929

REACTIONS (2)
  - Muscle spasms [None]
  - Middle insomnia [None]
